FAERS Safety Report 13238325 (Version 1)
Quarter: 2017Q1

REPORT INFORMATION
  Report Type: Spontaneous
  Country: US (occurrence: US)
  Receive Date: 20170215
  Receipt Date: 20170215
  Transmission Date: 20170428
  Serious: Yes (Other)
  Sender: FDA-Public Use
  Company Number: None

PATIENT
  Age: 78 Year
  Sex: Female
  Weight: 63 kg

DRUGS (17)
  1. BABY ASPRIN [Concomitant]
     Active Substance: ASPIRIN
  2. LABETALOL [Concomitant]
     Active Substance: LABETALOL\LABETALOL HYDROCHLORIDE
  3. CELEBREX [Concomitant]
     Active Substance: CELECOXIB
  4. VITAMIN D3 [Concomitant]
     Active Substance: CHOLECALCIFEROL
  5. PREDNISONE. [Concomitant]
     Active Substance: PREDNISONE
  6. VITAMIN B COMPLEX [Concomitant]
     Active Substance: CYANOCOBALAMIN\DEXPANTHENOL\NIACINAMIDE\PYRIDOXINE HYDROCHLORIDE\RIBOFLAVIN 5^-PHOSPHATE SODIUM\THIAMINE HYDROCHLORIDE\VITAMIN B COMPLEX
  7. HYDROCODONE [Concomitant]
     Active Substance: HYDROCODONE
  8. CITRICAL [Concomitant]
     Active Substance: CALCIUM CITRATE
  9. STOOL SOFTNER [Concomitant]
  10. LYRICA [Concomitant]
     Active Substance: PREGABALIN
  11. CENTRUM [Concomitant]
     Active Substance: VITAMINS
  12. LOARTRAN [Concomitant]
  13. PROLIA [Concomitant]
     Active Substance: DENOSUMAB
  14. MILK OF MAGNESIA [Concomitant]
     Active Substance: MAGNESIUM HYDROXIDE
  15. BENLYSTA [Suspect]
     Active Substance: BELIMUMAB
     Indication: SYSTEMIC LUPUS ERYTHEMATOSUS
     Dosage: ?          OTHER FREQUENCY:EVERY 3 MONTHS;OTHER ROUTE:INFUSION?
  16. PLAQUENIL [Concomitant]
     Active Substance: HYDROXYCHLOROQUINE SULFATE
  17. METHOCARBANOL [Concomitant]

REACTIONS (10)
  - Oedema peripheral [None]
  - Asthenia [None]
  - Memory impairment [None]
  - Headache [None]
  - Hypertension [None]
  - Gait disturbance [None]
  - Urinary tract infection [None]
  - Vision blurred [None]
  - Myalgia [None]
  - Mental impairment [None]

NARRATIVE: CASE EVENT DATE: 20160426
